FAERS Safety Report 4371710-X (Version None)
Quarter: 2004Q2

REPORT INFORMATION
  Report Type: 
  Country: None (occurrence: None)
  Receive Date: 20040602
  Receipt Date: 20040518
  Transmission Date: 20050107
  Serious: Yes (Hospitalization)
  Sender: FDA-Public Use
  Company Number: FR-JNJFOC-20031001531

PATIENT
  Age: 36 Year
  Sex: Female

DRUGS (3)
  1. TOPIRAMATE [Suspect]
     Indication: EPILEPSY
     Dosage: 200 MG, 1 IN 1 DAY ORAL
     Route: 048
     Dates: start: 20030619
  2. DEPAKENE [Suspect]
     Dates: end: 20040101
  3. NEURONTIN [Concomitant]

REACTIONS (4)
  - ABORTION INDUCED [None]
  - DRUG EXPOSURE DURING PREGNANCY [None]
  - MULTIPLE CONGENITAL ABNORMALITIES [None]
  - PREGNANCY [None]
